FAERS Safety Report 9670029 (Version 1)
Quarter: 2013Q4

REPORT INFORMATION
  Report Type: Spontaneous
  Country: FR (occurrence: FR)
  Receive Date: 20131105
  Receipt Date: 20131105
  Transmission Date: 20140711
  Serious: Yes (Hospitalization)
  Sender: FDA-Public Use
  Company Number: FR-PFIZER INC-2013310055

PATIENT
  Age: 51 Year
  Sex: Female

DRUGS (6)
  1. SOLU-MEDROL [Suspect]
     Indication: MULTIPLE SCLEROSIS
     Dosage: 1 G, DAILY
     Route: 040
     Dates: start: 20110831
  2. SOLU-MEDROL [Suspect]
     Dosage: 1 G
     Route: 042
     Dates: start: 20120706
  3. SOLU-MEDROL [Suspect]
     Dosage: 1 G
     Route: 042
     Dates: start: 20120918
  4. TYSABRI [Suspect]
     Indication: MULTIPLE SCLEROSIS
     Dosage: 300 MG, MONTHLY
     Route: 042
     Dates: start: 20130327
  5. DOLIPRANE [Concomitant]
     Dosage: UNK
     Route: 048
     Dates: start: 20130528
  6. RIVOTRIL [Concomitant]
     Dosage: 2.5 MG/ML, 3 GTT, 1X/DAY
     Route: 048
     Dates: start: 20130528

REACTIONS (1)
  - Invasive ductal breast carcinoma [Unknown]
